FAERS Safety Report 8883895 (Version 1)
Quarter: 2012Q4

REPORT INFORMATION
  Report Type: 
  Country: GB (occurrence: GB)
  Receive Date: 20121102
  Receipt Date: 20121102
  Transmission Date: 20130627
  Serious: Yes (Other)
  Sender: FDA-Public Use
  Company Number: GB-PFIZER INC-2012272481

PATIENT
  Sex: Male

DRUGS (4)
  1. RAMIPRIL [Suspect]
     Indication: BLOOD PRESSURE
     Dosage: 2.5 mg, 1x/day
     Route: 048
  2. RAMIPRIL [Suspect]
     Indication: HEART DISORDER
     Dosage: 5 mg, UNK
  3. BISOPROLOL FUMARATE [Concomitant]
  4. ASPIRIN [Concomitant]

REACTIONS (1)
  - Thrombophlebitis [Not Recovered/Not Resolved]
